FAERS Safety Report 18970811 (Version 2)
Quarter: 2021Q2

REPORT INFORMATION
  Report Type: Report from Study
  Country: CA (occurrence: CA)
  Receive Date: 20210304
  Receipt Date: 20210604
  Transmission Date: 20210717
  Serious: Yes (Other)
  Sender: FDA-Public Use
  Company Number: CA-009507513-1510CAN006789

PATIENT
  Age: 24 Year
  Sex: Female

DRUGS (3)
  1. TEMODAL [Suspect]
     Active Substance: TEMOZOLOMIDE
     Indication: ANAPLASTIC ASTROCYTOMA
     Dosage: 165 MG, QD (ONCE DAILY) FOR 42 DAYS
     Route: 048
     Dates: start: 20150925
  2. TEMODAL [Suspect]
     Active Substance: TEMOZOLOMIDE
     Dosage: 420 MILLIGRAM DAILY
     Route: 048
     Dates: start: 2020, end: 20201108
  3. TEMODAL [Suspect]
     Active Substance: TEMOZOLOMIDE
     Dosage: UNK, DAILY
     Route: 048
     Dates: start: 2020, end: 2021

REACTIONS (7)
  - Anaemia [Unknown]
  - Insomnia [Not Recovered/Not Resolved]
  - Radiotherapy [Unknown]
  - Drug ineffective [Unknown]
  - General physical condition abnormal [Not Recovered/Not Resolved]
  - Off label use [Unknown]
  - Weight increased [Not Recovered/Not Resolved]

NARRATIVE: CASE EVENT DATE: 20150925
